FAERS Safety Report 16890681 (Version 7)
Quarter: 2021Q4

REPORT INFORMATION
  Report Type: Spontaneous
  Country: US (occurrence: US)
  Receive Date: 20191007
  Receipt Date: 20211014
  Transmission Date: 20220303
  Serious: No
  Sender: FDA-Public Use
  Company Number: US-PFIZER INC-2019058019

PATIENT
  Age: 63 Year
  Sex: Male
  Weight: 99 kg

DRUGS (4)
  1. LYRICA [Suspect]
     Active Substance: PREGABALIN
     Indication: Lumbar spinal stenosis
     Dosage: 150 MG, TWICE DAILY (1 CAPSULE BID)
     Route: 048
     Dates: start: 2018
  2. LYRICA [Suspect]
     Active Substance: PREGABALIN
     Indication: Hypoaesthesia
  3. LYRICA [Suspect]
     Active Substance: PREGABALIN
     Indication: Pain in extremity
  4. LYRICA [Suspect]
     Active Substance: PREGABALIN
     Indication: Back pain

REACTIONS (11)
  - Intentional product misuse [Unknown]
  - Product dose omission issue [Unknown]
  - Amnesia [Not Recovered/Not Resolved]
  - Weight fluctuation [Recovering/Resolving]
  - Nocturnal dyspnoea [Unknown]
  - Attention deficit hyperactivity disorder [Unknown]
  - Confusional state [Unknown]
  - Hypoaesthesia [Unknown]
  - Neuralgia [Unknown]
  - Memory impairment [Unknown]
  - Nerve injury [Unknown]
